FAERS Safety Report 4336748-7 (Version None)
Quarter: 2004Q2

REPORT INFORMATION
  Report Type: 
  Country: None (occurrence: None)
  Receive Date: 20040408
  Receipt Date: 20040329
  Transmission Date: 20050107
  Serious: Yes (Other)
  Sender: FDA-Public Use
  Company Number: NSADSS2003002721

PATIENT
  Age: 72 Year
  Sex: Female
  Weight: 57.8336 kg

DRUGS (13)
  1. REMICADE [Suspect]
     Indication: RHEUMATOID ARTHRITIS
     Dosage: SEE IMAGE
     Route: 041
     Dates: start: 20030107, end: 20030107
  2. REMICADE [Suspect]
     Indication: RHEUMATOID ARTHRITIS
     Dosage: SEE IMAGE
     Route: 041
     Dates: start: 20030212
  3. AREDIA [Suspect]
     Indication: DRUG USE FOR UNKNOWN INDICATION
     Dosage: 90 MG, 1 IN 1 MONTH
     Dates: end: 20030206
  4. ARAVA [Suspect]
     Dosage: 20 MG
  5. VIOXX [Concomitant]
  6. ULTRAM [Concomitant]
  7. SYNTHROID [Concomitant]
  8. PREDNISONE [Concomitant]
  9. VICODIN [Concomitant]
  10. LACRI-LUBE (LACRI-LUBE) [Concomitant]
  11. ISOPTO TEARS (ISOPTO TEARS) [Concomitant]
  12. FOLIC ACID [Concomitant]
  13. ACTONEL [Concomitant]

REACTIONS (5)
  - IMPAIRED HEALING [None]
  - LIMB INJURY [None]
  - OSTEOPOROSIS [None]
  - RASH MACULAR [None]
  - RASH SCALY [None]
